FAERS Safety Report 11819146 (Version 1)
Quarter: 2015Q4

REPORT INFORMATION
  Report Type: Spontaneous
  Country: US (occurrence: None)
  Receive Date: 20151209
  Receipt Date: 20151209
  Transmission Date: 20160305
  Serious: Yes (Hospitalization)
  Sender: FDA-Public Use
  Company Number: None

PATIENT
  Age: 86 Year
  Sex: Female
  Weight: 70.4 kg

DRUGS (7)
  1. GLIPIZIDE. [Suspect]
     Active Substance: GLIPIZIDE
     Indication: DIABETES MELLITUS
     Dosage: CHRONIC
     Route: 048
  2. AMLODIPINE [Concomitant]
     Active Substance: AMLODIPINE BESYLATE
  3. LEVOTHYROXINE. [Concomitant]
     Active Substance: LEVOTHYROXINE
  4. APAP/CODEINE [Concomitant]
     Active Substance: ACETAMINOPHEN\CODEINE PHOSPHATE
  5. ASA [Concomitant]
     Active Substance: ASPIRIN
  6. CARVEDILOL. [Concomitant]
     Active Substance: CARVEDILOL
  7. ROSUVASTATIN [Concomitant]
     Active Substance: ROSUVASTATIN

REACTIONS (9)
  - VIIth nerve paralysis [None]
  - Vitamin B12 deficiency [None]
  - Hallucination, visual [None]
  - Dysarthria [None]
  - Urinary tract infection [None]
  - Dehydration [None]
  - Hypoglycaemia [None]
  - Acute kidney injury [None]
  - Encephalopathy [None]

NARRATIVE: CASE EVENT DATE: 20150108
